FAERS Safety Report 21557262 (Version 1)
Quarter: 2022Q4

REPORT INFORMATION
  Report Type: Spontaneous
  Country: JP (occurrence: JP)
  Receive Date: 20221105
  Receipt Date: 20221105
  Transmission Date: 20230112
  Serious: Yes (Other)
  Sender: FDA-Public Use
  Company Number: JP-STRIDES ARCOLAB LIMITED-2022SP014624

PATIENT
  Age: 77 Year
  Sex: Female

DRUGS (10)
  1. PREDNISOLONE [Suspect]
     Active Substance: PREDNISOLONE
     Indication: Extranodal marginal zone B-cell lymphoma (MALT type)
     Dosage: 60 MILLIGRAM ON DAYS 1-5 (PART OF R-THPCOP REGIMEN)
     Route: 065
  2. PREDNISOLONE [Suspect]
     Active Substance: PREDNISOLONE
     Indication: Colorectal cancer stage I
  3. RITUXIMAB [Suspect]
     Active Substance: RITUXIMAB
     Indication: Colorectal cancer stage I
     Dosage: 375 MILLIGRAM/SQ. METER (R-THPCOP REGIMEN)
     Route: 065
  4. RITUXIMAB [Suspect]
     Active Substance: RITUXIMAB
     Indication: Extranodal marginal zone B-cell lymphoma (MALT type)
     Dosage: 375 MILLIGRAM/SQ. METER (BR REGIMEN)
     Route: 065
  5. CYCLOPHOSPHAMIDE [Suspect]
     Active Substance: CYCLOPHOSPHAMIDE
     Indication: Colorectal cancer stage I
     Dosage: 750 MILLIGRAM/SQ. METER (PART OF R-THPCOP REGIMEN)
     Route: 065
  6. CYCLOPHOSPHAMIDE [Suspect]
     Active Substance: CYCLOPHOSPHAMIDE
     Indication: Extranodal marginal zone B-cell lymphoma (MALT type)
  7. PIRARUBICIN [Suspect]
     Active Substance: PIRARUBICIN
     Indication: Colorectal cancer stage I
     Dosage: 50 MILLIGRAM/SQ. METER (PART OF R-THPCOP REGIMEN)
     Route: 065
  8. PIRARUBICIN [Suspect]
     Active Substance: PIRARUBICIN
     Indication: Extranodal marginal zone B-cell lymphoma (MALT type)
  9. VINCRISTINE [Suspect]
     Active Substance: VINCRISTINE
     Indication: Colorectal cancer stage I
     Dosage: 1.4 MG/M2, ON DAY 1 (PART OF R-THPCOP REGIMEN)
     Route: 065
  10. VINCRISTINE [Suspect]
     Active Substance: VINCRISTINE
     Indication: Extranodal marginal zone B-cell lymphoma (MALT type)

REACTIONS (1)
  - Haematotoxicity [Unknown]
